FAERS Safety Report 7672657-3 (Version None)
Quarter: 2011Q3

REPORT INFORMATION
  Report Type: 
  Country: None (occurrence: None)
  Receive Date: 20110809
  Receipt Date: 20110802
  Transmission Date: 20111222
  Serious: Yes (Other)
  Sender: FDA-Public Use
  Company Number: US-BAYER-201030322NA

PATIENT
  Age: 18 Year
  Sex: Female
  Weight: 80.726 kg

DRUGS (7)
  1. YASMIN [Suspect]
     Indication: PREMENSTRUAL SYNDROME
  2. YASMIN [Suspect]
     Indication: ACNE
  3. HYDROCODONE BITARTRATE AND ACETAMINOPHEN [Concomitant]
     Dosage: UNK
     Dates: start: 20090423
  4. CYCLOBENZAPRINE [Concomitant]
     Dosage: 10 MG, UNK
     Dates: start: 20090423
  5. TRAMADOL HCL [Concomitant]
     Dosage: 50 MG, UNK
     Dates: start: 20090427
  6. BELLA ALK/PB [Concomitant]
     Dosage: UNK
     Dates: start: 20090502
  7. YASMIN [Suspect]
     Indication: CONTRACEPTION
     Dosage: EARLY 2007
     Route: 048
     Dates: start: 20070101, end: 20081101

REACTIONS (5)
  - DIARRHOEA [None]
  - NAUSEA [None]
  - GALLBLADDER POLYP [None]
  - ABDOMINAL PAIN UPPER [None]
  - CHOLECYSTITIS CHRONIC [None]
